FAERS Safety Report 16578647 (Version 2)
Quarter: 2019Q3

REPORT INFORMATION
  Report Type: Report from Study
  Country: None (occurrence: BR)
  Receive Date: 20190716
  Receipt Date: 20190819
  Transmission Date: 20191004
  Serious: Yes (Hospitalization, Disabling, Other)
  Sender: FDA-Public Use
  Company Number: BR-ABBVIE-19K-020-2851000-00

PATIENT
  Sex: Female
  Weight: 57 kg

DRUGS (2)
  1. HUMIRA [Suspect]
     Active Substance: ADALIMUMAB
     Route: 058
     Dates: start: 20190627
  2. HUMIRA [Suspect]
     Active Substance: ADALIMUMAB
     Indication: PSORIATIC ARTHROPATHY
     Route: 058
     Dates: start: 20181127, end: 2019

REACTIONS (11)
  - Mass [Recovering/Resolving]
  - Surgical failure [Unknown]
  - Blister [Recovered/Resolved]
  - Intervertebral disc protrusion [Not Recovered/Not Resolved]
  - Tendon rupture [Recovering/Resolving]
  - Procedural pain [Unknown]
  - Wound [Recovered/Resolved]
  - Erythema [Recovered/Resolved]
  - Joint range of motion decreased [Recovered/Resolved]
  - Skin exfoliation [Recovered/Resolved]
  - Purulence [Recovered/Resolved]

NARRATIVE: CASE EVENT DATE: 2019
